FAERS Safety Report 23327064 (Version 1)
Quarter: 2023Q4

REPORT INFORMATION
  Report Type: Spontaneous
  Country: JP (occurrence: JP)
  Receive Date: 20231221
  Receipt Date: 20231221
  Transmission Date: 20240110
  Serious: Yes (Hospitalization, Other)
  Sender: FDA-Public Use
  Company Number: JP-KYOWAKIRIN-2023KK013618

PATIENT

DRUGS (3)
  1. ISTRADEFYLLINE [Suspect]
     Active Substance: ISTRADEFYLLINE
     Indication: Product used for unknown indication
     Dosage: 20 MG
     Route: 048
  2. ROPINIROLE HYDROCHLORIDE [Suspect]
     Active Substance: ROPINIROLE HYDROCHLORIDE
     Indication: Product used for unknown indication
     Dosage: 16 MG, (HARUROPI TAPES 16MG HAD BEEN USED SINCE BEFORE AUG 2022)
     Route: 062
     Dates: end: 20230812
  3. ROPINIROLE HYDROCHLORIDE [Suspect]
     Active Substance: ROPINIROLE HYDROCHLORIDE
     Dosage: 8 MG
     Route: 062
     Dates: start: 20230825

REACTIONS (1)
  - Putamen haemorrhage [Unknown]

NARRATIVE: CASE EVENT DATE: 20230812
